FAERS Safety Report 8923064 (Version 1)
Quarter: 2012Q4

REPORT INFORMATION
  Report Type: 
  Country: FR (occurrence: FR)
  Receive Date: 20121123
  Receipt Date: 20121123
  Transmission Date: 20130627
  Serious: Yes (Life-Threatening, Hospitalization)
  Sender: FDA-Public Use
  Company Number: FR-SHIRE-ALL1-2012-05846

PATIENT
  Age: 63 Year
  Sex: Female

DRUGS (1)
  1. XAGRID [Suspect]
     Indication: ESSENTIAL THROMBOCYTHAEMIA
     Dosage: 0.5 mg, 2x/day:bid
     Route: 048
     Dates: start: 201209, end: 20120928

REACTIONS (2)
  - Acute pulmonary oedema [Recovered/Resolved]
  - Cardiogenic shock [Recovered/Resolved]
